FAERS Safety Report 9948317 (Version 2)
Quarter: 2014Q1

REPORT INFORMATION
  Report Type: Report from Study
  Country: US (occurrence: US)
  Receive Date: 20140303
  Receipt Date: 20140303
  Transmission Date: 20141002
  Serious: No
  Sender: FDA-Public Use
  Company Number: US-ABBVIE-12P-163-1000389-00

PATIENT
  Age: 53 Year
  Sex: Male

DRUGS (14)
  1. HUMIRA [Suspect]
     Indication: CROHN^S DISEASE
     Dates: start: 20120819
  2. HUMIRA [Suspect]
     Dates: start: 201301
  3. AZULFIDINE [Concomitant]
     Indication: CROHN^S DISEASE
     Dosage: 2 TABS TWICE DAILY
     Route: 048
  4. DOXAZOSIN MESYLATE [Concomitant]
     Indication: PROSTATIC DISORDER
     Dosage: 4MG DAILY
     Route: 048
  5. OXYBUTYNIN CHLORIDE [Concomitant]
     Indication: PROSTATIC DISORDER
     Dosage: 5MG DAILY
     Route: 048
  6. FISH OIL [Concomitant]
     Indication: BLOOD CHOLESTEROL
  7. ASA [Concomitant]
     Indication: CARDIOVASCULAR EVENT PROPHYLAXIS
     Route: 048
  8. OSTEO BI-FLEX [Concomitant]
     Indication: ARTHROPATHY
     Route: 048
  9. CENTRUM MVI [Concomitant]
     Indication: VITAMIN SUPPLEMENTATION
     Dosage: PILL
  10. METHOTREXATE [Concomitant]
     Indication: CROHN^S DISEASE
     Route: 058
     Dates: start: 20120906
  11. OMEPRAZOLE [Concomitant]
     Indication: PRODUCT USED FOR UNKNOWN INDICATION
  12. DETROL LA [Concomitant]
     Indication: PRODUCT USED FOR UNKNOWN INDICATION
  13. FOLIC ACID [Concomitant]
     Indication: PRODUCT USED FOR UNKNOWN INDICATION
  14. PREDNISONE [Concomitant]
     Indication: CROHN^S DISEASE

REACTIONS (6)
  - Anal fissure [Not Recovered/Not Resolved]
  - Diarrhoea [Not Recovered/Not Resolved]
  - Crohn^s disease [Not Recovered/Not Resolved]
  - Anal fistula infection [Not Recovered/Not Resolved]
  - Anorectal infection [Not Recovered/Not Resolved]
  - Abdominal pain [Not Recovered/Not Resolved]
